FAERS Safety Report 4518337-4 (Version None)
Quarter: 2004Q4

REPORT INFORMATION
  Report Type: 
  Country: None (occurrence: None)
  Receive Date: 20041203
  Receipt Date: 20040715
  Transmission Date: 20050328
  Serious: Yes (Other)
  Sender: FDA-Public Use
  Company Number: US-ABBOTT-04P-163-0267473-00

PATIENT
  Sex: Female
  Weight: 61.335 kg

DRUGS (3)
  1. BIAXIN XL [Suspect]
     Indication: SINUSITIS
     Route: 048
     Dates: start: 20040504, end: 20040508
  2. OMNICEF [Suspect]
     Indication: SINUSITIS
     Dates: start: 20040522, end: 20040522
  3. CLAVULIN [Suspect]
     Indication: SINUSITIS
     Route: 048
     Dates: start: 20040509, end: 20040521

REACTIONS (8)
  - ABDOMINAL PAIN [None]
  - ACTIVITIES OF DAILY LIVING IMPAIRED [None]
  - CONSTIPATION [None]
  - FATIGUE [None]
  - HEPATITIS [None]
  - HYPERSOMNIA [None]
  - JAUNDICE CHOLESTATIC [None]
  - PRURITUS [None]
